FAERS Safety Report 7466083-X (Version None)
Quarter: 2011Q2

REPORT INFORMATION
  Report Type: 
  Country: None (occurrence: None)
  Receive Date: 20110509
  Receipt Date: 20100626
  Transmission Date: 20111010
  Serious: No
  Sender: FDA-Public Use
  Company Number: US-ALEXION-A201000746

PATIENT
  Sex: Female

DRUGS (3)
  1. SOLIRIS [Suspect]
     Indication: PAROXYSMAL NOCTURNAL HAEMOGLOBINURIA
     Dosage: DOSING EVERY 28 DAYS
     Route: 042
     Dates: start: 20090901, end: 20091101
  2. SOLIRIS [Suspect]
     Dosage: Q2W
     Route: 042
     Dates: start: 20100201
  3. SOLIRIS [Suspect]
     Dosage: DOSING EVERY 21 DAYS
     Route: 042
     Dates: start: 20091201, end: 20100201

REACTIONS (3)
  - BLOOD LACTATE DEHYDROGENASE INCREASED [None]
  - FLANK PAIN [None]
  - RENAL DISORDER [None]
